FAERS Safety Report 8603498-8 (Version None)
Quarter: 2012Q3

REPORT INFORMATION
  Report Type: 
  Country: None (occurrence: None)
  Receive Date: 20120817
  Receipt Date: 20120813
  Transmission Date: 20120928
  Serious: Yes (Death, Other)
  Sender: FDA-Public Use
  Company Number: GB-ABBOTT-12P-167-0945160-00

PATIENT
  Sex: Male
  Weight: 104 kg

DRUGS (16)
  1. CLARITHROMYCIN [Suspect]
     Indication: PHARYNGITIS
     Route: 048
     Dates: start: 20111028
  2. ENSURE [Concomitant]
     Indication: NUTRITIONAL SUPPORT
     Route: 048
     Dates: start: 20110105
  3. HUMIRA [Suspect]
     Indication: CROHN'S DISEASE
     Route: 058
     Dates: start: 20111005
  4. METHADONE HYDROCHLORIDE [Concomitant]
     Indication: CROHN'S DISEASE
     Route: 048
     Dates: start: 20111025
  5. METHADONE HYDROCHLORIDE [Concomitant]
     Indication: PAIN
     Route: 048
  6. ORAMORPH SR [Concomitant]
     Indication: PAIN
  7. MS CONTIN [Concomitant]
     Indication: PAIN
     Route: 048
  8. LANSOPRAZOLE [Concomitant]
     Indication: DYSPEPSIA
     Dates: start: 20070219
  9. DIAZEPAM [Concomitant]
     Indication: PRODUCT USED FOR UNKNOWN INDICATION
     Route: 048
     Dates: start: 20111019
  10. VENTOLIN [Concomitant]
     Indication: PRODUCT USED FOR UNKNOWN INDICATION
     Dosage: 100 MCG/PUFF
  11. HYDROXYCOBALAMIN [Concomitant]
     Indication: VITAMIN D DEFICIENCY
  12. ASCORBIC ACID [Concomitant]
     Indication: PRODUCT USED FOR UNKNOWN INDICATION
     Dosage: 1000 + 10MG (ZINC)
     Route: 048
     Dates: start: 20111006
  13. ACETAMINOPHEN [Concomitant]
     Indication: PAIN
  14. ORAMORPH SR [Concomitant]
     Indication: CROHN'S DISEASE
     Dosage: DIVIDED
     Dates: start: 20110201, end: 20111025
  15. ADCAL D3 [Concomitant]
     Indication: BONE DISORDER
     Route: 048
     Dates: start: 20110808
  16. VITAMIN BPC CAPSULES [Concomitant]
     Indication: NUTRITIONAL SUPPORT
     Dates: start: 20110623

REACTIONS (26)
  - ADVERSE DRUG REACTION [None]
  - PAIN [None]
  - CHEST PAIN [None]
  - DYSURIA [None]
  - RECTAL HAEMORRHAGE [None]
  - CROHN'S DISEASE [None]
  - MALAISE [None]
  - CONFUSIONAL STATE [None]
  - C-REACTIVE PROTEIN INCREASED [None]
  - HYPERHIDROSIS [None]
  - IMMUNOSUPPRESSION [None]
  - INCORRECT DOSE ADMINISTERED [None]
  - DIPLOPIA [None]
  - TOXICITY TO VARIOUS AGENTS [None]
  - DIZZINESS [None]
  - POTENTIATING DRUG INTERACTION [None]
  - DIFFUSE ALVEOLAR DAMAGE [None]
  - TREMOR [None]
  - VOMITING [None]
  - PYREXIA [None]
  - OROPHARYNGEAL PAIN [None]
  - HEADACHE [None]
  - HICCUPS [None]
  - AGGRESSION [None]
  - WHITE BLOOD CELL COUNT INCREASED [None]
  - VISION BLURRED [None]
